FAERS Safety Report 7878019-8 (Version None)
Quarter: 2011Q4

REPORT INFORMATION
  Report Type: 
  Country: None (occurrence: None)
  Receive Date: 20111031
  Receipt Date: 20111019
  Transmission Date: 20120403
  Serious: Yes (Hospitalization)
  Sender: FDA-Public Use
  Company Number: US-CELGENEUS-163-21660-11102594

PATIENT
  Age: 64 Year
  Sex: Female
  Weight: 56.4 kg

DRUGS (2)
  1. BEVACIZUMAB [Suspect]
     Dosage: 10 MILLIGRAM/KILOGRAM
     Route: 041
     Dates: start: 20090921, end: 20100701
  2. ABRAXANE [Suspect]
     Dosage: 150 MILLIGRAM/SQ. METER
     Route: 041
     Dates: start: 20090921, end: 20100701

REACTIONS (9)
  - HYPONATRAEMIA [None]
  - SKIN INFECTION [None]
  - ENCEPHALITIC INFECTION [None]
  - CARDIAC ARREST [None]
  - ACUTE RESPIRATORY DISTRESS SYNDROME [None]
  - CONVULSION [None]
  - EYE INFECTION [None]
  - LUNG INFECTION [None]
  - SINUSITIS [None]
